FAERS Safety Report 20635432 (Version 1)
Quarter: 2022Q1

REPORT INFORMATION
  Report Type: Spontaneous
  Country: JP (occurrence: JP)
  Receive Date: 20220325
  Receipt Date: 20220325
  Transmission Date: 20220423
  Serious: Yes (Other)
  Sender: FDA-Public Use
  Company Number: JP-STRIDES ARCOLAB LIMITED-2022SP003071

PATIENT
  Age: 66 Year
  Sex: Male

DRUGS (9)
  1. HALOPERIDOL [Suspect]
     Active Substance: HALOPERIDOL
     Indication: Bipolar I disorder
     Dosage: UNK
     Route: 065
  2. HALOPERIDOL [Suspect]
     Active Substance: HALOPERIDOL
     Indication: Mania
  3. LITHIUM [Suspect]
     Active Substance: LITHIUM
     Indication: Bipolar I disorder
     Dosage: UNK
     Route: 065
  4. LITHIUM [Suspect]
     Active Substance: LITHIUM
     Indication: Mania
     Dosage: 800 MILLIGRAM PER DAY
     Route: 065
  5. BLONANSERIN [Suspect]
     Active Substance: BLONANSERIN
     Indication: Bipolar I disorder
     Dosage: 8 MILLIGRAM PER DAY
     Route: 065
  6. BLONANSERIN [Suspect]
     Active Substance: BLONANSERIN
     Dosage: 12 MILLIGRAM PER DAY (DOSE INCREASED)
     Route: 065
  7. CARBAMAZEPINE [Concomitant]
     Active Substance: CARBAMAZEPINE
     Indication: Bipolar I disorder
     Dosage: UNK
     Route: 065
  8. CARBAMAZEPINE [Concomitant]
     Active Substance: CARBAMAZEPINE
     Indication: Mania
  9. TRIAZOLAM [Concomitant]
     Active Substance: TRIAZOLAM
     Indication: Bipolar I disorder
     Dosage: 0.25 MILLIGRAM PER DAY
     Route: 065

REACTIONS (2)
  - Hyperthyroidism [Recovered/Resolved]
  - Off label use [Unknown]
